FAERS Safety Report 16159407 (Version 2)
Quarter: 2019Q2

REPORT INFORMATION
  Report Type: Spontaneous
  Country: US (occurrence: US)
  Receive Date: 20190404
  Receipt Date: 20190515
  Transmission Date: 20190711
  Serious: Yes (Other)
  Sender: FDA-Public Use
  Company Number: US-SUPERNUS PHARMACEUTICALS, INC.-2019SUP00032

PATIENT
  Age: 39 Year
  Sex: Female
  Weight: 50.34 kg

DRUGS (7)
  1. TROKENDI XR [Suspect]
     Active Substance: TOPIRAMATE
     Dosage: 200 MG, EVERY 96 HOURS
  2. AMBIEN [Concomitant]
     Active Substance: ZOLPIDEM TARTRATE
  3. FIORINAL/ CODEINE #3 [Concomitant]
     Dosage: UNK, AS NEEDED
  4. TROKENDI XR [Suspect]
     Active Substance: TOPIRAMATE
     Dosage: 100 MG, 1X/DAY
     Route: 048
     Dates: start: 201708, end: 201712
  5. TROKENDI XR [Suspect]
     Active Substance: TOPIRAMATE
     Dosage: 200 MG, 1X/DAY
     Route: 048
     Dates: start: 201712
  6. BOTOX [Concomitant]
     Active Substance: ONABOTULINUMTOXINA
     Dosage: UNK
     Dates: start: 201710, end: 201801
  7. AJOVY [Concomitant]
     Active Substance: FREMANEZUMAB-VFRM
     Dosage: UNK
     Dates: start: 201808, end: 201808

REACTIONS (10)
  - Pyrexia [Recovered/Resolved]
  - Oropharyngeal pain [Recovered/Resolved]
  - Vision blurred [Recovering/Resolving]
  - Central nervous system lesion [Unknown]
  - Eye pain [Recovered/Resolved]
  - Nasal congestion [Recovering/Resolving]
  - Tremor [Recovered/Resolved]
  - Ear pain [Recovered/Resolved]
  - Influenza [Recovered/Resolved]
  - Visual acuity reduced [Recovering/Resolving]

NARRATIVE: CASE EVENT DATE: 201811
